FAERS Safety Report 4747029-1 (Version None)
Quarter: 2005Q3

REPORT INFORMATION
  Report Type: 
  Country: None (occurrence: None)
  Receive Date: 20050817
  Receipt Date: 20050713
  Transmission Date: 20060218
  Serious: Yes (Hospitalization)
  Sender: FDA-Public Use
  Company Number: US-BRISTOL-MYERS SQUIBB COMPANY-13035530

PATIENT
  Age: 58 Year
  Sex: Female
  Weight: 84 kg

DRUGS (10)
  1. METFORMIN HCL [Suspect]
     Indication: DIABETES MELLITUS
     Route: 048
     Dates: end: 20050710
  2. LASIX [Concomitant]
  3. PEPCID [Concomitant]
  4. TRAZODONE HCL [Concomitant]
  5. ZOCOR [Concomitant]
  6. ASPIRIN [Concomitant]
  7. LANOXIN [Concomitant]
  8. SYNTHROID [Concomitant]
  9. LISINOPRIL [Concomitant]
  10. ALDACTONE [Concomitant]

REACTIONS (6)
  - ACUTE RESPIRATORY DISTRESS SYNDROME [None]
  - BLOOD CREATININE INCREASED [None]
  - BLOOD LACTIC ACID INCREASED [None]
  - COMA [None]
  - MENTAL STATUS CHANGES [None]
  - SEPTIC SHOCK [None]
